FAERS Safety Report 24782417 (Version 1)
Quarter: 2024Q4

REPORT INFORMATION
  Report Type: Spontaneous
  Country: US (occurrence: US)
  Receive Date: 20241227
  Receipt Date: 20241227
  Transmission Date: 20250114
  Serious: No
  Sender: Haleon PLC
  Company Number: US-HALEON-2218185

PATIENT
  Age: 73 Year
  Sex: Female

DRUGS (1)
  1. SENSODYNE PRONAMEL INTENSIVE ENAMEL REPAIR WHITENING [Suspect]
     Active Substance: POTASSIUM NITRATE\SODIUM FLUORIDE
     Indication: Dental disorder prophylaxis
     Dosage: EXPDATE:20260731 , I USUALLY USE LIKE A PEA SIZE AMOUNT, 1 - APPLICATION (AP)
     Dates: start: 20241120, end: 20241125

REACTIONS (5)
  - Stomatitis [Recovered/Resolved]
  - Glossitis [Recovered/Resolved]
  - Throat irritation [Recovered/Resolved]
  - Illness [Recovered/Resolved]
  - Oropharyngeal discomfort [Recovered/Resolved]

NARRATIVE: CASE EVENT DATE: 20241120
